FAERS Safety Report 12561834 (Version 2)
Quarter: 2017Q1

REPORT INFORMATION
  Report Type: Spontaneous
  Country: CN (occurrence: CN)
  Receive Date: 20160715
  Receipt Date: 20170113
  Transmission Date: 20170428
  Serious: Yes (Death)
  Sender: FDA-Public Use
  Company Number: CN-BAYER-2016-137564

PATIENT
  Age: 34 Year
  Sex: Female

DRUGS (1)
  1. YASMIN [Suspect]
     Active Substance: DROSPIRENONE\ETHINYL ESTRADIOL
     Dosage: UNK
     Route: 048
     Dates: start: 201607

REACTIONS (2)
  - Chest pain [Unknown]
  - Death [Fatal]

NARRATIVE: CASE EVENT DATE: 20160713
